FAERS Safety Report 5398839-1 (Version None)
Quarter: 2007Q3

REPORT INFORMATION
  Report Type: 
  Country: None (occurrence: None)
  Receive Date: 20070725
  Receipt Date: 20070725
  Transmission Date: 20080115
  Serious: Yes (Hospitalization, Other)
  Sender: FDA-Public Use
  Company Number: None

PATIENT
  Age: 62 Year
  Sex: Male
  Weight: 117.9352 kg

DRUGS (3)
  1. OXYCODONE 30MG [Suspect]
     Indication: BACK PAIN
     Dosage: 2,5XDAY ORAL
     Route: 048
     Dates: start: 20070622
  2. OXYCODONE 30MG [Suspect]
     Indication: POST LAMINECTOMY SYNDROME
     Dosage: 2 5XDAY ORAL
     Route: 048
     Dates: start: 20070717
  3. OXYCODONE 30MG [Suspect]
     Indication: RADICULITIS
     Dosage: 2 5XDAY ORAL
     Route: 048
     Dates: start: 20070717

REACTIONS (3)
  - EYE SWELLING [None]
  - PHARMACEUTICAL PRODUCT COMPLAINT [None]
  - URTICARIA [None]
